FAERS Safety Report 11033740 (Version 1)
Quarter: 2015Q2

REPORT INFORMATION
  Report Type: Spontaneous
  Country: US (occurrence: US)
  Receive Date: 20150415
  Receipt Date: 20150415
  Transmission Date: 20150821
  Serious: Yes (Other)
  Sender: FDA-Public Use
  Company Number: US-ASTRAZENECA-2015SE33778

PATIENT
  Age: 14 Year
  Sex: Female
  Weight: 45.4 kg

DRUGS (4)
  1. BENADRYL [Concomitant]
     Active Substance: DIPHENHYDRAMINE HYDROCHLORIDE
     Route: 030
  2. HALDOL [Suspect]
     Active Substance: HALOPERIDOL
     Indication: ANGER
     Route: 065
  3. ATIVAN [Concomitant]
     Active Substance: LORAZEPAM
     Route: 030
  4. SEROQUEL [Suspect]
     Active Substance: QUETIAPINE FUMARATE
     Route: 048

REACTIONS (3)
  - Dementia [Unknown]
  - Psychotic disorder [Unknown]
  - Aggression [Unknown]
